FAERS Safety Report 6912875-2 (Version None)
Quarter: 2010Q3

REPORT INFORMATION
  Report Type: 
  Country: None (occurrence: None)
  Receive Date: 20100806
  Receipt Date: 20090223
  Transmission Date: 20110219
  Serious: Yes (Other)
  Sender: FDA-Public Use
  Company Number: US-PFIZER INC-2009174226

PATIENT
  Sex: Female

DRUGS (2)
  1. DETROL LA [Suspect]
  2. PROZAC [Interacting]

REACTIONS (3)
  - DRUG INTERACTION [None]
  - DYSURIA [None]
  - URINARY INCONTINENCE [None]
